FAERS Safety Report 9605877 (Version 1)
Quarter: 2013Q4

REPORT INFORMATION
  Report Type: Spontaneous
  Country: FR (occurrence: FR)
  Receive Date: 20131008
  Receipt Date: 20131008
  Transmission Date: 20140711
  Serious: Yes (Other)
  Sender: FDA-Public Use
  Company Number: FR-GILEAD-2013-0084698

PATIENT
  Age: 42 Year
  Sex: Female

DRUGS (4)
  1. TRUVADA [Suspect]
     Indication: HIV INFECTION
     Dosage: UNK
     Route: 048
     Dates: start: 201209
  2. PREZISTA [Suspect]
     Indication: HIV INFECTION
     Dosage: UNK
     Route: 048
     Dates: start: 201209
  3. NORVIR [Suspect]
     Indication: HIV INFECTION
     Dosage: UNK
     Route: 048
     Dates: start: 201209
  4. LERCAN [Concomitant]
     Indication: HYPERTENSION
     Dosage: UNK
     Dates: start: 2009

REACTIONS (2)
  - Diabetes mellitus [Not Recovered/Not Resolved]
  - Hypercholesterolaemia [Not Recovered/Not Resolved]
